FAERS Safety Report 6737038-5 (Version None)
Quarter: 2010Q2

REPORT INFORMATION
  Report Type: 
  Country: None (occurrence: None)
  Receive Date: 20100524
  Receipt Date: 20100517
  Transmission Date: 20101027
  Serious: Yes (Death)
  Sender: FDA-Public Use
  Company Number: US-ASTRAZENECA-2008UW18539

PATIENT
  Age: 10205 Day
  Sex: Female

DRUGS (2)
  1. SEROQUEL [Suspect]
     Dosage: 200 MG TWO TABS AT HS
     Route: 048
     Dates: start: 20030101
  2. LEXAPRO [Concomitant]
     Indication: DEPRESSION
     Dates: start: 20030101

REACTIONS (2)
  - DEATH [None]
  - ILL-DEFINED DISORDER [None]
